FAERS Safety Report 16880956 (Version 2)
Quarter: 2019Q4

REPORT INFORMATION
  Report Type: Spontaneous
  Country: JP (occurrence: JP)
  Receive Date: 20191003
  Receipt Date: 20191007
  Transmission Date: 20200122
  Serious: Yes (Other)
  Sender: FDA-Public Use
  Company Number: JP-PFIZER INC-2019416801

PATIENT
  Age: 72 Year
  Sex: Male

DRUGS (9)
  1. DOCETAXEL. [Suspect]
     Active Substance: DOCETAXEL
     Indication: SALIVARY GLAND CANCER
     Dosage: UNK, CYCLIC(INTRAARTERIAL INFUSION OF CISPLATIN AND DOCETAXEL BY TRANSFEMORAL CATHETERIZATION WAS PE
     Route: 013
  2. CISPLATIN. [Suspect]
     Active Substance: CISPLATIN
     Dosage: 80 MG/M2, CYCLIC
     Route: 013
  3. DOCETAXEL. [Suspect]
     Active Substance: DOCETAXEL
     Dosage: 10 MG/M2, CYCLIC
     Route: 013
  4. DOCETAXEL. [Suspect]
     Active Substance: DOCETAXEL
     Dosage: UNK, CYCLIC(INFUSION OF DOCETAXEL AT 1.5 MG/MIN)
     Route: 013
  5. CISPLATIN. [Suspect]
     Active Substance: CISPLATIN
     Indication: SALIVARY GLAND CANCER
     Dosage: UNK, CYCLIC(INTRAARTERIAL INFUSION OF CISPLATIN AND DOCETAXEL BY TRANSFEMORAL CATHETERIZATION WAS PE
     Route: 013
  6. CISPLATIN. [Suspect]
     Active Substance: CISPLATIN
     Dosage: UNK, CYCLIC(INFUSED AT  5 MG/MIN )
     Route: 013
  7. CISPLATIN. [Suspect]
     Active Substance: CISPLATIN
     Dosage: 100 MG/M2, CYCLIC
     Route: 013
  8. DOCETAXEL. [Suspect]
     Active Substance: DOCETAXEL
     Dosage: 15 MG/M2, CYCLIC
     Route: 013
  9. SODIUM THIOSULFATE [Concomitant]
     Active Substance: SODIUM THIOSULFATE
     Dosage: UNK(INFUSION)
     Route: 042

REACTIONS (2)
  - Colitis ischaemic [Recovering/Resolving]
  - Neutropenia [Recovering/Resolving]
